FAERS Safety Report 8827355 (Version 2)
Quarter: 2013Q2

REPORT INFORMATION
  Report Type: Spontaneous
  Country: PT (occurrence: PT)
  Receive Date: 20121008
  Receipt Date: 20130607
  Transmission Date: 20140414
  Serious: Yes (Congenital Anomaly)
  Sender: FDA-Public Use
  Company Number: PT-JNJFOC-20121002353

PATIENT
  Sex: 0

DRUGS (1)
  1. PREZISTA [Suspect]
     Indication: FOETAL EXPOSURE DURING PREGNANCY
     Route: 015

REACTIONS (1)
  - Bone disorder [Unknown]
